FAERS Safety Report 21903930 (Version 1)
Quarter: 2023Q1

REPORT INFORMATION
  Report Type: Spontaneous
  Country: HR (occurrence: HR)
  Receive Date: 20230124
  Receipt Date: 20230124
  Transmission Date: 20230418
  Serious: Yes (Life-Threatening, Other)
  Sender: FDA-Public Use
  Company Number: HR-GLAXOSMITHKLINE-HR2023GSK008980

PATIENT

DRUGS (2)
  1. ALBUTEROL [Suspect]
     Active Substance: ALBUTEROL
     Indication: Bronchitis
     Dosage: UNK UNK, BID, 8 DROPS IN 3 ML OF NACL
     Dates: start: 20221217
  2. ALBUTEROL [Suspect]
     Active Substance: ALBUTEROL
     Dosage: UNK UNK, Q4D, 8 DROPS IN 3 ML OF NACL

REACTIONS (5)
  - Fear [Recovering/Resolving]
  - Irritability [Recovering/Resolving]
  - Hiccups [Recovering/Resolving]
  - Arrhythmia [Recovering/Resolving]
  - Initial insomnia [Recovering/Resolving]

NARRATIVE: CASE EVENT DATE: 20221226
